FAERS Safety Report 7935946-0 (Version None)
Quarter: 2011Q4

REPORT INFORMATION
  Report Type: 
  Country: None (occurrence: None)
  Receive Date: 20111121
  Receipt Date: 20111107
  Transmission Date: 20120403
  Serious: Yes (Other)
  Sender: FDA-Public Use
  Company Number: 1000025501

PATIENT
  Age: 45 Year
  Sex: Female
  Weight: 63 kg

DRUGS (8)
  1. LAMICTAL [Suspect]
     Dosage: SEE IMAGE ORAL
     Route: 048
     Dates: start: 20091201, end: 20100121
  2. LAMICTAL [Suspect]
     Dosage: SEE IMAGE ORAL
     Route: 048
     Dates: start: 20110201, end: 20110228
  3. LAMICTAL [Suspect]
     Dosage: SEE IMAGE ORAL
     Route: 048
     Dates: start: 20110618, end: 20110620
  4. LAMICTAL [Suspect]
     Dosage: SEE IMAGE ORAL
     Route: 048
     Dates: start: 20100101, end: 20110131
  5. LAMICTAL [Suspect]
     Dosage: SEE IMAGE ORAL
     Route: 048
     Dates: start: 20110612, end: 20110617
  6. ESCITALOPRAM OXALATE [Suspect]
     Dosage: 20 MG (20 MG, 1 IN 1 D), ORAL
     Route: 048
     Dates: start: 20110101
  7. VALDOXAN (AGOMELATINE) (AGOMELATINE) [Concomitant]
  8. MULTIPLE VITAMINS (MULTIPLE VITAMINS) (MULTIPLE VITAMINS) [Concomitant]

REACTIONS (3)
  - DISTURBANCE IN ATTENTION [None]
  - LICHEN PLANUS [None]
  - LARYNGEAL OEDEMA [None]
